FAERS Safety Report 8101385-5 (Version None)
Quarter: 2012Q1

REPORT INFORMATION
  Report Type: 
  Country: None (occurrence: None)
  Receive Date: 20120129
  Receipt Date: 20110907
  Transmission Date: 20120608
  Serious: No
  Sender: FDA-Public Use
  Company Number: US-ABBOTT-11P-163-0852241-00

PATIENT
  Age: 93 Year
  Sex: Female

DRUGS (10)
  1. ACETAMINOPHEN [Concomitant]
     Indication: PAIN
     Dosage: EVERY DAY
  2. ACETAMINOPHEN [Concomitant]
     Indication: INFLAMMATION
  3. NAPROXEN (ALEVE) [Concomitant]
     Indication: INFLAMMATION
  4. VITAMIN B-12 [Concomitant]
     Indication: PRODUCT USED FOR UNKNOWN INDICATION
     Dosage: DAILY
  5. TOPROL-XL [Concomitant]
     Indication: PRODUCT USED FOR UNKNOWN INDICATION
  6. NAPROXEN (ALEVE) [Concomitant]
     Indication: PAIN
     Dosage: EVERY DAY
  7. MULTI-VITAMINS [Concomitant]
     Indication: PRODUCT USED FOR UNKNOWN INDICATION
     Dosage: DAILY
  8. HUMIRA [Suspect]
     Indication: RHEUMATOID ARTHRITIS
     Dates: end: 20110801
  9. ASCORBIC ACID [Concomitant]
     Indication: PRODUCT USED FOR UNKNOWN INDICATION
     Dosage: DAILY
  10. PLAQUENIL [Concomitant]
     Indication: PRODUCT USED FOR UNKNOWN INDICATION
     Dosage: DAILY

REACTIONS (3)
  - PAIN IN EXTREMITY [None]
  - DYSPNOEA [None]
  - GAIT DISTURBANCE [None]
